FAERS Safety Report 8505153-1 (Version None)
Quarter: 2012Q2

REPORT INFORMATION
  Report Type: 
  Country: None (occurrence: None)
  Receive Date: 20120405
  Receipt Date: 20100806
  Transmission Date: 20120825
  Serious: Yes (Other)
  Sender: FDA-Public Use
  Company Number: PHHY2010US39933

PATIENT
  Sex: Female
  Weight: 77.5 kg

DRUGS (13)
  1. SIMVASTATIN [Concomitant]
  2. CELEBREX [Concomitant]
  3. FLUTICASONE PROPIONATE [Concomitant]
  4. RECLAST [Suspect]
     Indication: OSTEOPOROSIS
     Dosage: 5 MG/100 ML, INTRAVENOUS
     Route: 042
     Dates: start: 20100603
  5. CLOBETASOL PROPIONATE [Concomitant]
  6. AMBIEN (ZOLPIDEM TARTARE) [Concomitant]
  7. LEXAPRO [Concomitant]
  8. WARFARIN SODIUM [Concomitant]
  9. NASONEX [Concomitant]
  10. VITAMIN D (ERGICALCIFEROL) [Concomitant]
  11. MULTIVITAMINS (ASCORBIC AICD, ERGOCALCIFEROL, FOLIC ACID, NICOTINAMIDE [Concomitant]
  12. DIURETICS (NO INGREDIENTS/SUBSTANCES) [Concomitant]
  13. CALCIUM CARBONATE [Concomitant]

REACTIONS (1)
  - RENAL IMPAIRMENT [None]
